FAERS Safety Report 17974754 (Version 2)
Quarter: 2020Q3

REPORT INFORMATION
  Report Type: Spontaneous
  Country: GB (occurrence: GB)
  Receive Date: 20200702
  Receipt Date: 20200720
  Transmission Date: 20201103
  Serious: Yes (Death)
  Sender: FDA-Public Use
  Company Number: GB-TEVA-2020-GB-1793890

PATIENT
  Age: 52 Year
  Sex: Male

DRUGS (8)
  1. CODEINE [Suspect]
     Active Substance: CODEINE
     Indication: ANALGESIC THERAPY
     Dosage: 90 MG
     Route: 048
     Dates: start: 20180102, end: 20200118
  2. MELATONIN [Concomitant]
     Active Substance: MELATONIN
     Dosage: 2 MILLIGRAM DAILY; NIGHT
  3. SODIUM VALPROATE [Concomitant]
     Active Substance: VALPROATE SODIUM
  4. OLANZAPINE. [Suspect]
     Active Substance: OLANZAPINE
     Indication: MENTAL DISORDER
     Route: 065
  5. CLOBAZAM. [Concomitant]
     Active Substance: CLOBAZAM
     Dosage: 10 MILLIGRAM DAILY; NIGHT
  6. VENTOLIN [Concomitant]
     Active Substance: ALBUTEROL SULFATE
     Indication: WHEEZING
     Dosage: 1?2 PUFFS FOUR HOURLY WHEN REQUIRED, MAXIMUM OF 8 PUFFS IN 24 HOURS
  7. OMEPRAZOLE. [Concomitant]
     Active Substance: OMEPRAZOLE
  8. AIRFLUSAL [Concomitant]
     Active Substance: FLUTICASONE FUROATE\SALMETEROL XINAFOATE
     Dosage: 2 PUFFS, 25MCG/DOSE/250MCG/DOSE

REACTIONS (10)
  - Emotional disorder [Fatal]
  - Memory impairment [Fatal]
  - Dysarthria [Fatal]
  - Somnolence [Fatal]
  - Drug dependence [Fatal]
  - Hypersomnia [Fatal]
  - Dyspnoea [Fatal]
  - Toxicity to various agents [Fatal]
  - Cold sweat [Fatal]
  - Cyanosis [Fatal]
